FAERS Safety Report 9044538 (Version 1)
Quarter: 2013Q1

REPORT INFORMATION
  Report Type: Report from Study
  Country: US (occurrence: US)
  Receive Date: 20130130
  Receipt Date: 20130130
  Transmission Date: 20140127
  Serious: No
  Sender: FDA-Public Use
  Company Number: US-ABBOTT-12P-163-0956762-00

PATIENT
  Age: 70 Year
  Sex: Female

DRUGS (22)
  1. HUMIRA 40 MG/0.8 ML PEN [Suspect]
     Indication: PSORIATIC ARTHROPATHY
  2. NORVASC [Concomitant]
     Indication: CARDIAC DISORDER
     Dosage: 5MG EVERY DAY
  3. POTASSIUM [Concomitant]
     Indication: PRODUCT USED FOR UNKNOWN INDICATION
     Dosage: 10MG EVERY DAY
  4. METROZINE [Concomitant]
     Indication: PRODUCT USED FOR UNKNOWN INDICATION
  5. LOMOTIL [Concomitant]
     Indication: PRODUCT USED FOR UNKNOWN INDICATION
     Dosage: UP TO 4 TIMES A DAY
  6. INDERAL [Concomitant]
     Indication: HYPERTENSION
  7. ZOCOR [Concomitant]
     Indication: PRODUCT USED FOR UNKNOWN INDICATION
     Dosage: 20MG EVERY DAY
  8. ARICEPT [Concomitant]
     Indication: DEMENTIA ALZHEIMER^S TYPE
     Dosage: 5MG IN THE AM AND 10MG IN THE PM
  9. VYVANSE [Concomitant]
     Indication: NARCOLEPSY
     Dosage: 70MG EVERY DAY
  10. HALCION [Concomitant]
     Indication: SLEEP DISORDER THERAPY
     Dosage: 0.5MG EVERY DAY
  11. XANAX [Concomitant]
     Indication: PRODUCT USED FOR UNKNOWN INDICATION
     Dosage: 0.5MG EVERY NIGHT AS NEEDED
  12. DEMEROL [Concomitant]
     Indication: DIARRHOEA
     Dosage: 25MG AT NOON AND 50MG AT NIGHT AS NEEDED
  13. DEMEROL [Concomitant]
     Indication: PAIN
  14. PHENERGAN [Concomitant]
     Indication: NAUSEA
     Dosage: EVERY DAY
  15. ALIGN [Concomitant]
     Indication: ALLERGY PROPHYLAXIS
     Dosage: EPI PEN, AS NEEDED
  16. LASIX [Concomitant]
     Indication: OEDEMA PERIPHERAL
     Dosage: 40/80MG AS NEEDED
  17. B12 [Concomitant]
     Indication: VITAMIN SUPPLEMENTATION
     Route: 050
  18. ZINC [Concomitant]
     Indication: SUPPLEMENTATION THERAPY
  19. FOLIC ACID [Concomitant]
     Indication: SUPPLEMENTATION THERAPY
  20. VITAMIN D3 [Concomitant]
     Indication: SUPPLEMENTATION THERAPY
  21. CALCIUM [Concomitant]
     Indication: SUPPLEMENTATION THERAPY
  22. MAGNESIUM [Concomitant]
     Indication: SUPPLEMENTATION THERAPY

REACTIONS (4)
  - Diarrhoea [Recovering/Resolving]
  - Arthropod bite [Recovering/Resolving]
  - Allergy to arthropod bite [Recovering/Resolving]
  - Crohn^s disease [Recovering/Resolving]
